FAERS Safety Report 9742655 (Version 2)
Quarter: 2013Q4

REPORT INFORMATION
  Report Type: Spontaneous
  Country: US (occurrence: US)
  Receive Date: 20131210
  Receipt Date: 20131210
  Transmission Date: 20140711
  Serious: Yes (Other)
  Sender: FDA-Public Use
  Company Number: US-GILEAD-2009-0024525

PATIENT
  Sex: Female
  Weight: 133.6 kg

DRUGS (14)
  1. LETAIRIS [Suspect]
     Indication: PULMONARY ARTERIAL HYPERTENSION
     Route: 048
     Dates: start: 20090626
  2. VIAGRA [Concomitant]
  3. NORVASC [Concomitant]
  4. CLONIDINE [Concomitant]
  5. BENICAR HCT [Concomitant]
  6. CRESTOR [Concomitant]
  7. PLAVIX [Concomitant]
  8. LANTUS [Concomitant]
  9. GLIMEPIRIDE [Concomitant]
  10. LYRICA [Concomitant]
  11. SYNTHROID [Concomitant]
  12. TRAMADOL HCL [Concomitant]
  13. XANAX [Concomitant]
  14. ASPIRIN [Concomitant]

REACTIONS (2)
  - Swollen tongue [Recovered/Resolved]
  - Fatigue [Recovered/Resolved]
